FAERS Safety Report 20749241 (Version 1)
Quarter: 2022Q2

REPORT INFORMATION
  Report Type: Report from Study
  Country: CA (occurrence: CA)
  Receive Date: 20220426
  Receipt Date: 20220426
  Transmission Date: 20220721
  Serious: Yes (Hospitalization)
  Sender: FDA-Public Use
  Company Number: CA-ABBVIE-22K-028-4370573-00

PATIENT
  Age: 55 Year
  Sex: Female

DRUGS (1)
  1. HUMIRA [Suspect]
     Active Substance: ADALIMUMAB
     Indication: Crohn^s disease
     Route: 058
     Dates: start: 20181122

REACTIONS (4)
  - Intra-abdominal fluid collection [Unknown]
  - Colitis [Unknown]
  - Crohn^s disease [Unknown]
  - Feeding disorder [Unknown]

NARRATIVE: CASE EVENT DATE: 20220318
